FAERS Safety Report 6622247-6 (Version None)
Quarter: 2010Q1

REPORT INFORMATION
  Report Type: 
  Country: None (occurrence: None)
  Receive Date: 20100310
  Receipt Date: 20100301
  Transmission Date: 20100710
  Serious: Yes (Other)
  Sender: FDA-Public Use
  Company Number: US-RB-025411-09

PATIENT
  Age: 26 Year
  Sex: Female

DRUGS (1)
  1. MUCINEX [Suspect]
     Indication: NASAL CONGESTION
     Route: 048
     Dates: start: 20090312

REACTIONS (7)
  - COUGH [None]
  - DYSPNOEA [None]
  - FOREIGN BODY [None]
  - OESOPHAGITIS [None]
  - PAIN [None]
  - PRODUCTIVE COUGH [None]
  - SKIN DISCOLOURATION [None]
